FAERS Safety Report 4610902-9 (Version None)
Quarter: 2005Q1

REPORT INFORMATION
  Report Type: 
  Country: None (occurrence: None)
  Receive Date: 20050317
  Receipt Date: 20050311
  Transmission Date: 20050727
  Serious: Yes (Other)
  Sender: FDA-Public Use
  Company Number: 200511975US

PATIENT
  Age: 27 Year
  Sex: Female

DRUGS (4)
  1. ALLEGRA [Suspect]
     Dosage: DOSE: NOT PROVIDED
  2. BUPROPION HCL [Suspect]
     Indication: DEPRESSION
     Dates: start: 20040114, end: 20041019
  3. CELEXA [Suspect]
     Dosage: DOSE: NOT PROVIDED
  4. ZANTAC [Suspect]
     Dosage: DOSE: NOT PROVIDED

REACTIONS (4)
  - COMPLICATION OF DELIVERY [None]
  - DRUG EXPOSURE DURING PREGNANCY [None]
  - HAEMORRHAGE [None]
  - UMBILICAL CORD ABNORMALITY [None]
